FAERS Safety Report 16031774 (Version 3)
Quarter: 2019Q3

REPORT INFORMATION
  Report Type: Report from Study
  Country: US (occurrence: US)
  Receive Date: 20190304
  Receipt Date: 20190902
  Transmission Date: 20191004
  Serious: Yes (Life-Threatening, Hospitalization, Other)
  Sender: FDA-Public Use
  Company Number: US-PFIZER INC-2019090113

PATIENT
  Age: 4 Year
  Sex: Male
  Weight: 15.5 kg

DRUGS (8)
  1. CYTARABINE. [Suspect]
     Active Substance: CYTARABINE
     Indication: ACUTE LYMPHOCYTIC LEUKAEMIA
     Dosage: 52 MG, OVER 1-30 MIN ON DAYS 1-4/8-11 /29-32/36-39
     Route: 042
     Dates: start: 20190109
  2. METHOTREXATE SODIUM. [Suspect]
     Active Substance: METHOTREXATE SODIUM
     Indication: ACUTE LYMPHOCYTIC LEUKAEMIA
     Dosage: 12 MG, ON DAYS 1, 8, 15 AND 22
     Route: 037
     Dates: start: 20190109
  3. MERCAPTOPURINE. [Suspect]
     Active Substance: MERCAPTOPURINE
     Dosage: 20 MG, ON DAYS 29-42
     Route: 048
     Dates: start: 20190212
  4. PEGASPARGASE [Suspect]
     Active Substance: PEGASPARGASE
     Indication: ACUTE LYMPHOCYTIC LEUKAEMIA
     Dosage: 1650 IU, OVER 2 HOURS, ON DAYS 15, 43
     Route: 042
     Dates: start: 20190122, end: 20190226
  5. CYCLOPHOSPHAMIDE. [Suspect]
     Active Substance: CYCLOPHOSPHAMIDE
     Indication: ACUTE LYMPHOCYTIC LEUKAEMIA
     Dosage: 680 MG, OVER 30-60 MIN ON DAY 1/29
     Route: 042
     Dates: start: 20190109
  6. MERCAPTOPURINE. [Suspect]
     Active Substance: MERCAPTOPURINE
     Indication: ACUTE LYMPHOCYTIC LEUKAEMIA
     Dosage: 40 MG, ON DAYS 1-8
     Route: 048
     Dates: start: 20190109
  7. INCB018424 [Suspect]
     Active Substance: RUXOLITINIB
     Indication: ACUTE LYMPHOCYTIC LEUKAEMIA
     Dosage: 35 MG, BID (DAYS 1-14/29-42)
     Route: 048
     Dates: start: 20190109
  8. VINCRISTINE SULFATE. [Suspect]
     Active Substance: VINCRISTINE SULFATE
     Indication: ACUTE LYMPHOCYTIC LEUKAEMIA
     Dosage: 1 MG, PUSH OVER 1 MIN, ON DAYS 15, 22, AND 43
     Route: 040
     Dates: start: 20190122

REACTIONS (2)
  - Anaphylactic reaction [Recovered/Resolved]
  - Febrile neutropenia [Recovered/Resolved]

NARRATIVE: CASE EVENT DATE: 20190201
